FAERS Safety Report 9500038 (Version 1)
Quarter: 2013Q1

REPORT INFORMATION
  Report Type: Spontaneous
  Country: US (occurrence: None)
  Receive Date: 20130107
  Receipt Date: 20130107
  Transmission Date: 20140127
  Serious: No
  Sender: FDA-Public Use
  Company Number: PHEH2012US021854

PATIENT
  Age: 46 Year
  Sex: Female
  Weight: 68.9 kg

DRUGS (5)
  1. GILENYA (FINGOLIMOD) CAPSULE, 0.5MG [Suspect]
     Indication: MULTIPLE SCLEROSIS
     Dates: start: 20121031
  2. SONATA (ZALEPLON) [Concomitant]
  3. ZYPAN [Concomitant]
  4. VESICARE (SOLIFENACIN SUCCINATE) [Concomitant]
  5. ADDERALL XR (AMFETAMINE ASPARTATE, AMFETAMINE SULFATE, DEXAMETAMINE SACCHARATE, DEXAMETAMINE SULFATE) [Concomitant]

REACTIONS (2)
  - Dysgeusia [None]
  - Nausea [None]
